FAERS Safety Report 21847954 (Version 1)
Quarter: 2023Q1

REPORT INFORMATION
  Report Type: Spontaneous
  Country: US (occurrence: US)
  Receive Date: 20230111
  Receipt Date: 20230111
  Transmission Date: 20230418
  Serious: No
  Sender: FDA-Public Use
  Company Number: US-AMNEAL PHARMACEUTICALS-2022-AMRX-03607

PATIENT
  Age: 69 Year
  Sex: Male
  Weight: 108.84 kg

DRUGS (1)
  1. OXYCODONE AND ACETAMINOPHEN [Suspect]
     Active Substance: ACETAMINOPHEN\OXYCODONE HYDROCHLORIDE
     Indication: Product used for unknown indication
     Dosage: 1 TABLETS, QD
     Route: 048
     Dates: start: 20221013, end: 20221017

REACTIONS (5)
  - Disturbance in attention [Recovered/Resolved]
  - Accidental underdose [Unknown]
  - Product taste abnormal [Unknown]
  - Nausea [Recovered/Resolved]
  - Headache [Recovered/Resolved]

NARRATIVE: CASE EVENT DATE: 20221013
